FAERS Safety Report 20595900 (Version 1)
Quarter: 2022Q1

REPORT INFORMATION
  Report Type: Spontaneous
  Country: TN (occurrence: TN)
  Receive Date: 20220315
  Receipt Date: 20220315
  Transmission Date: 20220423
  Serious: Yes (Hospitalization)
  Sender: FDA-Public Use
  Company Number: TN-NOVAST LABORATORIES INC.-2022NOV000229

PATIENT
  Age: 19 Year
  Sex: Male

DRUGS (2)
  1. QUETIAPINE [Suspect]
     Active Substance: QUETIAPINE
     Indication: Psychotic behaviour
     Dosage: 400 MILLIGRAM QD
     Route: 065
  2. VALPROIC ACID [Suspect]
     Active Substance: VALPROIC ACID
     Indication: Psychotic behaviour
     Dosage: 1500 MILLIGRAM QD
     Route: 065

REACTIONS (1)
  - Thrombocytopenic purpura [Recovered/Resolved]
